FAERS Safety Report 4763680-7 (Version None)
Quarter: 2005Q3

REPORT INFORMATION
  Report Type: 
  Country: None (occurrence: None)
  Receive Date: 20050908
  Receipt Date: 20050627
  Transmission Date: 20060218
  Serious: Yes (Hospitalization)
  Sender: FDA-Public Use
  Company Number: PHNU2005DE02414

PATIENT
  Sex: Male
  Weight: 68 kg

DRUGS (2)
  1. VOLTAREN [Suspect]
     Indication: MUSCULOSKELETAL DISCOMFORT
     Route: 061
  2. DICLOFENAC [Suspect]
     Route: 061

REACTIONS (4)
  - ALLERGY TEST POSITIVE [None]
  - DERMATITIS ATOPIC [None]
  - DERMATITIS CONTACT [None]
  - SKIN REACTION [None]
